FAERS Safety Report 5534502-1 (Version None)
Quarter: 2007Q4

REPORT INFORMATION
  Report Type: 
  Country: None (occurrence: None)
  Receive Date: 20071204
  Receipt Date: 20071204
  Transmission Date: 20080405
  Serious: Yes (Life-Threatening, Hospitalization, Other)
  Sender: FDA-Public Use
  Company Number: None

PATIENT
  Age: 27 Year
  Sex: Female
  Weight: 65.7716 kg

DRUGS (2)
  1. CLINDAMYCIN HCL [Suspect]
     Indication: GINGIVAL INFECTION
     Dosage: 1 CAPSULE   4 TIMES PER DAY
     Dates: start: 20071121, end: 20071124
  2. CLINDAMYCIN HCL [Suspect]
     Indication: WISDOM TEETH REMOVAL
     Dosage: 1 CAPSULE   4 TIMES PER DAY
     Dates: start: 20071121, end: 20071124

REACTIONS (5)
  - ARTHRITIS [None]
  - CHEST PAIN [None]
  - ELECTROCARDIOGRAM ABNORMAL [None]
  - INFLUENZA [None]
  - MUSCULOSKELETAL CHEST PAIN [None]
